FAERS Safety Report 21314958 (Version 2)
Quarter: 2023Q2

REPORT INFORMATION
  Report Type: Spontaneous
  Country: GB (occurrence: GB)
  Receive Date: 20220909
  Receipt Date: 20230614
  Transmission Date: 20230722
  Serious: Yes (Other)
  Sender: FDA-Public Use
  Company Number: None

PATIENT
  Age: 76 Year
  Sex: Female
  Weight: 88 kg

DRUGS (6)
  1. NAPROXEN [Suspect]
     Active Substance: NAPROXEN
     Indication: Ill-defined disorder
     Dosage: 500 MILLIGRAM (WITH OR SOON AFTER FOOD)
     Route: 065
     Dates: start: 20220823
  2. NAPROXEN [Suspect]
     Active Substance: NAPROXEN
     Dosage: UNK
     Route: 065
     Dates: start: 20220831
  3. CALCIUM CARBONATE [Concomitant]
     Active Substance: CALCIUM CARBONATE
     Indication: Ill-defined disorder
     Dosage: 1 DOSAGE FORM, BID (TAKE 1 TWICE A DAY)
     Route: 065
     Dates: start: 20210625
  4. LEVOTHYROXINE [Concomitant]
     Active Substance: LEVOTHYROXINE
     Indication: Ill-defined disorder
     Dosage: 1 DOSAGE FORM, QD (TAKE ONE DAILY)
     Route: 065
     Dates: start: 20210625
  5. LOSARTAN [Concomitant]
     Active Substance: LOSARTAN
     Indication: Ill-defined disorder
     Dosage: 1 DOSAGE FORM, QD (TAKE ONE TABLET ONCE A DAY)
     Route: 065
     Dates: start: 20210625
  6. OMEPRAZOLE [Concomitant]
     Active Substance: OMEPRAZOLE
     Indication: Ill-defined disorder
     Dosage: 2 DOSAGE FORM, QD (TAKE TWO CAPSULE EACH DAY)
     Route: 065
     Dates: start: 20210625

REACTIONS (3)
  - Condition aggravated [Recovered/Resolved]
  - Barrett^s oesophagus [Recovered/Resolved]
  - Chest pain [Recovered/Resolved]

NARRATIVE: CASE EVENT DATE: 20220831
